APPROVED DRUG PRODUCT: RAMELTEON
Active Ingredient: RAMELTEON
Strength: 8MG
Dosage Form/Route: TABLET;ORAL
Application: A215972 | Product #001 | TE Code: BX
Applicant: AUROBINDO PHARMA LTD
Approved: Jul 10, 2023 | RLD: No | RS: No | Type: RX